FAERS Safety Report 5884345-4 (Version None)
Quarter: 2008Q3

REPORT INFORMATION
  Report Type: 
  Country: None (occurrence: None)
  Receive Date: 20080915
  Receipt Date: 20080903
  Transmission Date: 20090109
  Serious: Yes (Hospitalization)
  Sender: FDA-Public Use
  Company Number: BE-PFIZER INC-2008072607

PATIENT
  Age: 42 Year
  Sex: Female

DRUGS (4)
  1. MEDROL [Suspect]
  2. TEGRETOL [Suspect]
  3. IBUPROFEN [Concomitant]
  4. ANTABUSE [Concomitant]

REACTIONS (3)
  - CANDIDIASIS [None]
  - CYTOMEGALOVIRUS INFECTION [None]
  - HYPERSENSITIVITY [None]
